FAERS Safety Report 22617605 (Version 1)
Quarter: 2023Q2

REPORT INFORMATION
  Report Type: Spontaneous
  Country: HR (occurrence: HR)
  Receive Date: 20230620
  Receipt Date: 20230620
  Transmission Date: 20230722
  Serious: No
  Sender: FDA-Public Use
  Company Number: HR-002147023-NVSC2022HR147267

PATIENT
  Age: 40 Year
  Sex: Female

DRUGS (3)
  1. PROPRANOLOL [Suspect]
     Active Substance: PROPRANOLOL HYDROCHLORIDE
     Indication: Prophylaxis
     Dosage: 40 MG, DAILY (20 MG, BID (2X1) )
     Route: 065
  2. PROPRANOLOL [Suspect]
     Active Substance: PROPRANOLOL HYDROCHLORIDE
     Indication: Off label use
  3. ERENUMAB [Concomitant]
     Active Substance: ERENUMAB
     Indication: Headache
     Dosage: 70 MG, Q4W
     Route: 065

REACTIONS (6)
  - Dizziness postural [Unknown]
  - Hypotension [Unknown]
  - Drug ineffective [Unknown]
  - Product use in unapproved indication [Unknown]
  - Product use issue [Unknown]
  - Off label use [Unknown]
